FAERS Safety Report 6433794-4 (Version None)
Quarter: 2009Q4

REPORT INFORMATION
  Report Type: 
  Country: None (occurrence: None)
  Receive Date: 20091110
  Receipt Date: 20090925
  Transmission Date: 20100525
  Serious: No
  Sender: FDA-Public Use
  Company Number: A0809080A

PATIENT
  Age: 89 Year
  Sex: Male

DRUGS (2)
  1. ALTABAX [Suspect]
     Route: 061
  2. UNKNOWN [Concomitant]

REACTIONS (1)
  - DERMATITIS CONTACT [None]
